FAERS Safety Report 9485870 (Version 2)
Quarter: 2013Q4

REPORT INFORMATION
  Report Type: Spontaneous
  Country: IT (occurrence: IT)
  Receive Date: 20130829
  Receipt Date: 20131025
  Transmission Date: 20140711
  Serious: Yes (Hospitalization)
  Sender: FDA-Public Use
  Company Number: PHHY2013IT093514

PATIENT
  Age: 80 Year
  Sex: Female

DRUGS (2)
  1. TOLEP [Suspect]
     Indication: EPILEPSY
     Dosage: 600 MG, DAILY
     Route: 048
     Dates: start: 20130717, end: 20130726
  2. TEGRETOL [Concomitant]
     Indication: EPILEPSY
     Dosage: 200 MG, UNK
     Dates: start: 20130502, end: 20130717

REACTIONS (1)
  - Drug reaction with eosinophilia and systemic symptoms [Recovered/Resolved]
